FAERS Safety Report 6381513-2 (Version None)
Quarter: 2009Q3

REPORT INFORMATION
  Report Type: 
  Country: None (occurrence: None)
  Receive Date: 20090925
  Receipt Date: 20090909
  Transmission Date: 20100115
  Serious: Yes (Hospitalization)
  Sender: FDA-Public Use
  Company Number: 1000006555

PATIENT
  Age: 69 Year
  Sex: Female

DRUGS (36)
  1. MILNACIPRAN (MILNACIPRAN HYDROCHLORIDE) (TABLETS) [Suspect]
     Indication: DYSTHYMIC DISORDER
     Dosage: 75 MG (75 MG, 1 IN 1 D), ORAL
     Route: 048
     Dates: start: 20061023
  2. WINTERMIN [Suspect]
     Indication: DYSTHYMIC DISORDER
     Dosage: 0.15 GM (0.15 GM, 1 IN 1 D), ORAL
     Route: 048
     Dates: start: 20070312
  3. CONSTAN [Suspect]
     Indication: DYSTHYMIC DISORDER
     Dosage: 1.2 MG (1.2 MG, 1 IN 1 D), ORAL
     Route: 048
     Dates: start: 20070312
  4. DEPAKENE [Suspect]
     Indication: INSOMNIA
     Dosage: 200 MG (200 MG, 1 IN 1 D), ORAL
     Route: 048
     Dates: start: 20070405
  5. PARULEON [Suspect]
     Indication: INSOMNIA
     Dosage: 0.25 MG (0.25 MG, 1 IN 1 D), ORAL; 0.125 MG), ORAL
     Route: 048
     Dates: end: 20090525
  6. PARULEON [Suspect]
     Indication: INSOMNIA
     Dosage: 0.25 MG (0.25 MG, 1 IN 1 D), ORAL; 0.125 MG), ORAL
     Route: 048
     Dates: start: 20080530
  7. PARULEON [Suspect]
     Indication: INSOMNIA
     Dosage: 0.25 MG (0.25 MG, 1 IN 1 D), ORAL; 0.125 MG), ORAL
     Route: 048
     Dates: start: 20090519
  8. PARULEON [Suspect]
     Indication: INSOMNIA
     Dosage: 0.25 MG (0.25 MG, 1 IN 1 D), ORAL; 0.125 MG), ORAL
     Route: 048
     Dates: start: 20090526
  9. MYSLEE [Suspect]
     Indication: INSOMNIA
     Dosage: 10 MG (10 MG, 1 IN 1 D), ORAL
     Route: 048
     Dates: start: 20080530, end: 20090518
  10. VEGETAMIN B [Suspect]
     Indication: INSOMNIA
     Dosage: 1 DOSAGE FORMS (1 DOSAGE FORMS, 1 IN 1 D), ORAL
     Route: 048
     Dates: start: 20071023
  11. UNKNOWN DRUG (SYNTHETIC NARCOTIC DRUG) [Suspect]
     Dosage: 12.5 MCG/HR (12.5 MCG/HR, DAILY)
     Dates: start: 20090317
  12. UNKNOWN DRUG (SYNTHETIC NARCOTIC DRUG) [Suspect]
     Dosage: 12.5 MCG/HR (12.5 MCG/HR, DAILY)
     Dates: start: 20090522
  13. ELCATONIN [Concomitant]
  14. CELECOXIB [Concomitant]
  15. ALDIOXA [Concomitant]
  16. TIZANIDINE HYDROCHLORIDE [Concomitant]
  17. DICLOFENAC SODIUM [Concomitant]
  18. KETOPROFEN [Concomitant]
  19. KETOPROFEN [Concomitant]
  20. MAGNESIUM OXIDE [Concomitant]
  21. PANTETHINE [Concomitant]
  22. SENNOSIDE [Concomitant]
  23. LIMAPROST [Concomitant]
  24. HYALURONATE SODIUM [Concomitant]
  25. BETAMETHASONE VALERATE [Concomitant]
  26. GENTAMICIN [Concomitant]
  27. MIXED KILLED BACTERIA PREPARATIONS [Concomitant]
  28. BAKUMONDO TO [Concomitant]
  29. NIFEDIPINE [Concomitant]
  30. DILTIAZEM HYDROCHLORIDE [Concomitant]
  31. RABEPRAZOLE SODIUM [Concomitant]
  32. ISOSORBIDE DINITRATE [Concomitant]
  33. ALUMINIUM HYDROXIDE WITH MAGNESIUM HYDROXIDE [Concomitant]
  34. CLOSTRIDIUM BUTYRICUM [Concomitant]
  35. PANCREATIC ENZYMES [Concomitant]
  36. SODIUM GUALENATE [Concomitant]

REACTIONS (10)
  - ANTIBODY TEST POSITIVE [None]
  - CONSTIPATION [None]
  - DECREASED APPETITE [None]
  - GASTROOESOPHAGEAL REFLUX DISEASE [None]
  - OEDEMA PERIPHERAL [None]
  - PNEUMOCOCCAL INFECTION [None]
  - PNEUMONIA ASPIRATION [None]
  - SOMNOLENCE [None]
  - URINARY INCONTINENCE [None]
  - VOMITING [None]
